FAERS Safety Report 7941901-7 (Version None)
Quarter: 2011Q4

REPORT INFORMATION
  Report Type: 
  Country: None (occurrence: None)
  Receive Date: 20111128
  Receipt Date: 20111116
  Transmission Date: 20120403
  Serious: Yes (Hospitalization)
  Sender: FDA-Public Use
  Company Number: CH-JNJFOC-20111008407

PATIENT
  Sex: Female

DRUGS (7)
  1. ESCITALOPRAM [Concomitant]
     Route: 065
  2. UNKNOWN MEDICATION [Concomitant]
     Route: 065
  3. MICARDIS [Concomitant]
     Route: 065
  4. MAGNESIOCARD [Concomitant]
     Route: 065
  5. TRAMADOL HYDROCHLORIDE [Suspect]
     Indication: PAIN
     Route: 048
     Dates: end: 20111007
  6. NISULID [Concomitant]
     Route: 065
  7. BONIVA [Concomitant]
     Route: 065

REACTIONS (2)
  - ASTHENIA [None]
  - ABASIA [None]
